FAERS Safety Report 19035160 (Version 2)
Quarter: 2021Q2

REPORT INFORMATION
  Report Type: Other
  Country: US (occurrence: US)
  Receive Date: 20210320
  Receipt Date: 20210621
  Transmission Date: 20210717
  Serious: No
  Sender: FDA-Public Use
  Company Number: US-ACORDA-ACO_167427_2021

PATIENT
  Age: 67 Year
  Sex: Female

DRUGS (6)
  1. INBRIJA [Suspect]
     Active Substance: LEVODOPA
     Indication: ON AND OFF PHENOMENON
  2. CARBIDOPA/LEVODOPA [Concomitant]
     Active Substance: CARBIDOPA\LEVODOPA
     Indication: PRODUCT USED FOR UNKNOWN INDICATION
     Dosage: 25/100MG: 1 PILL 5X/DAY
     Route: 065
  3. BENADRYL [Suspect]
     Active Substance: DIPHENHYDRAMINE HYDROCHLORIDE
     Indication: ORAL PRURITUS
     Dosage: 25 MILLIGRAM
     Route: 065
  4. INBRIJA [Suspect]
     Active Substance: LEVODOPA
     Indication: PARKINSON^S DISEASE
     Dosage: 84MG: 2 DOSAGE FORM, PRN (NOT TO EXCEED 5 DOSES A DAY)
     Dates: start: 20201229
  5. RYTARY [Concomitant]
     Active Substance: CARBIDOPA\LEVODOPA
     Indication: PRODUCT USED FOR UNKNOWN INDICATION
     Dosage: 4875/195MG: 1 PILL 9X/DAY
     Route: 065
  6. BENADRYL [Suspect]
     Active Substance: DIPHENHYDRAMINE HYDROCHLORIDE
     Indication: MOUTH SWELLING

REACTIONS (17)
  - Hypoaesthesia [Unknown]
  - Throat irritation [Unknown]
  - Drug effect less than expected [Unknown]
  - Muscle spasms [Unknown]
  - Taste disorder [Recovered/Resolved]
  - Mouth swelling [Unknown]
  - Intentional underdose [Unknown]
  - Dry mouth [Unknown]
  - Somnolence [Unknown]
  - Device use issue [Unknown]
  - Insomnia [Unknown]
  - Cough [Unknown]
  - Stomatitis [Unknown]
  - Product dose omission issue [Unknown]
  - Product taste abnormal [Unknown]
  - Hypersensitivity [Unknown]
  - Oral pruritus [Recovered/Resolved]

NARRATIVE: CASE EVENT DATE: 20210310
